FAERS Safety Report 6597812-5 (Version None)
Quarter: 2010Q1

REPORT INFORMATION
  Report Type: 
  Country: None (occurrence: None)
  Receive Date: 20100216
  Receipt Date: 20100202
  Transmission Date: 20100710
  Serious: Yes (Other)
  Sender: FDA-Public Use
  Company Number: 231133J10USA

PATIENT
  Age: 53 Year
  Sex: Male

DRUGS (8)
  1. REBIF [Suspect]
     Indication: MULTIPLE SCLEROSIS
     Dosage: 44 MCG, 3 IN 1 WEEKS, SUBCUTANEOUS
     Route: 058
     Dates: start: 20090821
  2. STEROIDS (CORTICOSTEROIDS) [Suspect]
     Indication: MULTIPLE SCLEROSIS RELAPSE
     Dosage: ORAL
     Route: 048
     Dates: start: 20090101, end: 20091101
  3. SOLU-MEDROL [Suspect]
     Indication: MULTIPLE SCLEROSIS RELAPSE
     Dosage: 1000 MG, INTRAVENOUS (NOT OTHERWISE SPECIFIED)
     Route: 042
     Dates: start: 20090101, end: 20100101
  4. CYMBALTA [Concomitant]
  5. FOLBEE (ALLOTHER THERAPEUTIC PRODUCTS) [Concomitant]
  6. VITAMIN D [Concomitant]
  7. LOTREL [Concomitant]
  8. VITAMIN B12 [Concomitant]

REACTIONS (1)
  - OSTEONECROSIS [None]
